FAERS Safety Report 16530011 (Version 1)
Quarter: 2019Q3

REPORT INFORMATION
  Report Type: Report from Study
  Country: ES (occurrence: ES)
  Receive Date: 20190704
  Receipt Date: 20190704
  Transmission Date: 20191004
  Serious: Yes (Hospitalization)
  Sender: FDA-Public Use
  Company Number: ES-TEVA-2019-ES-1072895

PATIENT
  Age: 79 Year
  Sex: Male

DRUGS (5)
  1. RANITIDINA (2A) [Concomitant]
     Active Substance: RANITIDINE
     Dosage: 300 MG CENA
     Route: 048
     Dates: start: 20170828
  2. AZACITIDINA (8198A) [Suspect]
     Active Substance: AZACITIDINE
     Indication: ACUTE MYELOID LEUKAEMIA
     Dosage: 144 MG DIA
     Dates: start: 20170828, end: 20170903
  3. MACROGOL (2768A) [Concomitant]
     Active Substance: POLYETHYLENE GLYCOLS
     Dosage: 1-1-1
     Route: 048
     Dates: start: 20170828, end: 20170830
  4. PREDNISONA (886A) [Concomitant]
     Active Substance: PREDNISONE
     Dosage: 10 MG EN DOSIS DESCENDENTE
     Route: 048
     Dates: start: 20170828
  5. ACICLOVIR [Suspect]
     Active Substance: ACYCLOVIR
     Dosage: 800 MG DIA
     Route: 048
     Dates: start: 20170828, end: 20170831

REACTIONS (1)
  - Acute kidney injury [Recovered/Resolved]

NARRATIVE: CASE EVENT DATE: 20170830
